FAERS Safety Report 5309601-X (Version None)
Quarter: 2007Q2

REPORT INFORMATION
  Report Type: 
  Country: None (occurrence: None)
  Receive Date: 20070424
  Receipt Date: 20070411
  Transmission Date: 20071010
  Serious: Yes (Other)
  Sender: FDA-Public Use
  Company Number: S07-USA-01561-01

PATIENT
  Age: 73 Year
  Sex: Female

DRUGS (16)
  1. TIAZAC [Suspect]
     Indication: NERVOUS SYSTEM DISORDER
     Dosage: 720 MG QID PO
     Route: 048
     Dates: start: 20060401
  2. TIAZAC [Suspect]
     Indication: VASOSPASM
     Dosage: 720 MG QID PO
     Route: 048
     Dates: start: 20060401
  3. TIAZAC [Suspect]
     Indication: NERVOUS SYSTEM DISORDER
     Dosage: 180 MG BID PO
     Route: 048
     Dates: start: 20040101
  4. TIAZAC [Suspect]
     Indication: VASOSPASM
     Dosage: 180 MG BID PO
     Route: 048
     Dates: start: 20040101
  5. TIAZAC [Suspect]
     Indication: NERVOUS SYSTEM DISORDER
     Dosage: 180 MG TID PO
     Route: 048
     Dates: end: 20060401
  6. TIAZAC [Suspect]
     Indication: VASOSPASM
     Dosage: 180 MG TID PO
     Route: 048
     Dates: end: 20060401
  7. ZETIA [Concomitant]
  8. COZAAR [Concomitant]
  9. ALLEGRA [Concomitant]
  10. PREMARIN [Concomitant]
  11. ASPIRIN [Concomitant]
  12. FOLIC ACID [Concomitant]
  13. IMDUR [Concomitant]
  14. CALCIUM + VITAMIN D [Concomitant]
  15. CENTRUM (MULTIVITAMIN) [Concomitant]
  16. ASCORBIC ACID [Concomitant]

REACTIONS (4)
  - CYANOPSIA [None]
  - OPTIC NERVE DISORDER [None]
  - VISUAL ACUITY REDUCED [None]
  - XANTHOPSIA [None]
